FAERS Safety Report 9837841 (Version 5)
Quarter: 2014Q4

REPORT INFORMATION
  Report Type: Spontaneous
  Country: IT (occurrence: IT)
  Receive Date: 20140123
  Receipt Date: 20141203
  Transmission Date: 20150529
  Serious: Yes (Hospitalization, Other)
  Sender: FDA-Public Use
  Company Number: IT-ALLERGAN-1400505US

PATIENT
  Age: 38 Year
  Sex: Female

DRUGS (2)
  1. OZURDEX [Suspect]
     Active Substance: DEXAMETHASONE
     Dosage: 700 ?G, SINGLE
     Route: 031
     Dates: start: 20130506, end: 20130506
  2. OZURDEX [Suspect]
     Active Substance: DEXAMETHASONE
     Indication: RETINAL VEIN OCCLUSION
     Dosage: 700 ?G, SINGLE
     Route: 031
     Dates: start: 20131217, end: 20131217

REACTIONS (4)
  - Eye pain [Recovering/Resolving]
  - Visual acuity reduced [Recovering/Resolving]
  - Endophthalmitis [Recovering/Resolving]
  - Ocular hyperaemia [Recovering/Resolving]

NARRATIVE: CASE EVENT DATE: 20131218
